FAERS Safety Report 8400829-9 (Version None)
Quarter: 2012Q2

REPORT INFORMATION
  Report Type: 
  Country: None (occurrence: None)
  Receive Date: 20120531
  Receipt Date: 20120518
  Transmission Date: 20120825
  Serious: Yes (Other)
  Sender: FDA-Public Use
  Company Number: US-ROCHE-1007470

PATIENT
  Sex: Female
  Weight: 95.794 kg

DRUGS (3)
  1. ZELBORAF [Suspect]
     Indication: MALIGNANT MELANOMA
     Route: 048
     Dates: start: 20111019, end: 20111129
  2. ZELBORAF [Suspect]
     Dosage: RESTARTED
  3. COUMADIN [Concomitant]
     Indication: PULMONARY EMBOLISM
     Route: 048
     Dates: start: 20110520

REACTIONS (8)
  - NAUSEA [None]
  - PRURITUS [None]
  - SUNBURN [None]
  - DIARRHOEA [None]
  - RASH [None]
  - DECREASED APPETITE [None]
  - ERYTHEMA [None]
  - CARDIAC DISORDER [None]
